FAERS Safety Report 22147994 (Version 1)
Quarter: 2023Q1

REPORT INFORMATION
  Report Type: Spontaneous
  Country: BE (occurrence: BE)
  Receive Date: 20230328
  Receipt Date: 20230328
  Transmission Date: 20230418
  Serious: Yes (Death, Life-Threatening)
  Sender: FDA-Public Use
  Company Number: None

PATIENT
  Age: 38 Year
  Sex: Female

DRUGS (11)
  1. RANITIDINE [Suspect]
     Active Substance: RANITIDINE
     Indication: Prophylaxis
     Dosage: 50 MILLIGRAM, QD (50MG CUMULATIVE DOSE)
     Route: 065
     Dates: start: 2005, end: 2005
  2. CEFAZOLIN SODIUM [Suspect]
     Active Substance: CEFAZOLIN SODIUM
     Indication: Prophylaxis
     Dosage: 4 GRAM, QD (4G CUMULATIVE DOSE)
     Route: 065
     Dates: start: 2005, end: 2005
  3. LEVOTHYROXINE [Concomitant]
     Active Substance: LEVOTHYROXINE
     Indication: Hypothyroidism
     Dosage: 125 MICROGRAM, QD (125 ?G/DAY)
     Route: 065
  4. KETOROLAC [Concomitant]
     Active Substance: KETOROLAC TROMETHAMINE
     Indication: Pain
     Dosage: UNK
     Route: 065
  5. METHYLPREDNISOLONE [Concomitant]
     Active Substance: METHYLPREDNISOLONE
     Indication: Osteotomy
     Dosage: 1 GRAM, QD (1G CUMULATIVE DOSE)
     Route: 065
  6. DEXAMETHASONE [Concomitant]
     Active Substance: DEXAMETHASONE
     Indication: Osteotomy
     Dosage: 20 MILLIGRAM, QD (20 MG/DAY)
     Route: 065
  7. DEXAMETHASONE [Concomitant]
     Active Substance: DEXAMETHASONE
     Indication: Prophylaxis
     Dosage: 15 MILLIGRAM (15 MG, UNK)
     Route: 065
  8. SUFENTANIL [Concomitant]
     Active Substance: SUFENTANIL
     Indication: Osteotomy
     Dosage: UNK (SINGLE DOSE FOR SURGERY)
     Route: 065
  9. PROPOFOL [Concomitant]
     Active Substance: PROPOFOL
     Indication: Osteotomy
     Dosage: UNK, (SINGLE DOSE FOR SURGERY)
     Route: 065
  10. ACETAMINOPHEN [Concomitant]
     Active Substance: ACETAMINOPHEN
     Indication: Pain
     Dosage: UNK
     Route: 065
  11. CISATRACURIUM [Concomitant]
     Active Substance: CISATRACURIUM
     Indication: Osteotomy
     Dosage: UNK, (SINGLE DOSE FOR SURGERY)
     Route: 065

REACTIONS (15)
  - Respiratory arrest [Fatal]
  - Eosinophilic myocarditis [Fatal]
  - Pulmonary congestion [Fatal]
  - Cardiogenic shock [Fatal]
  - Hypersensitivity [Fatal]
  - Sudden death [Fatal]
  - Palpitations [Unknown]
  - Cyanosis [Unknown]
  - Sinus tachycardia [Unknown]
  - Normocytic anaemia [Unknown]
  - Chest pain [Unknown]
  - Dyspnoea [Unknown]
  - Rales [Unknown]
  - Jugular vein distension [Unknown]
  - Ventricular hypokinesia [Unknown]

NARRATIVE: CASE EVENT DATE: 20050101
